FAERS Safety Report 8824495 (Version 1)
Quarter: 2012Q4

REPORT INFORMATION
  Report Type: 
  Country: US (occurrence: US)
  Receive Date: 20121004
  Receipt Date: 20121004
  Transmission Date: 20130627
  Serious: No
  Sender: FDA-Public Use
  Company Number: US-PFIZER INC-2012244019

PATIENT
  Age: 52 Year
  Sex: Female
  Weight: 61.22 kg

DRUGS (2)
  1. FLECTOR [Suspect]
     Indication: JOINT INJURY
     Dosage: UNK, every twelve hours
     Route: 062
  2. FLECTOR [Suspect]
     Indication: BACK INJURY

REACTIONS (4)
  - Intentional drug misuse [Unknown]
  - Blister [Recovered/Resolved]
  - Skin irritation [Recovered/Resolved]
  - Skin swelling [Recovered/Resolved]
